FAERS Safety Report 6727542-8 (Version None)
Quarter: 2010Q2

REPORT INFORMATION
  Report Type: 
  Country: None (occurrence: None)
  Receive Date: 20100517
  Receipt Date: 20100503
  Transmission Date: 20101027
  Serious: Yes (Hospitalization, Other)
  Sender: FDA-Public Use
  Company Number: PHHY2010BR29003

PATIENT
  Sex: Female

DRUGS (2)
  1. EXFORGE [Suspect]
     Dosage: 320/5 MG,UNK
  2. RASILEZ (ALISKIREN) [Concomitant]
     Dosage: 300 MG,UNK

REACTIONS (2)
  - SURGERY [None]
  - SWELLING [None]
